FAERS Safety Report 5076405-5 (Version None)
Quarter: 2006Q3

REPORT INFORMATION
  Report Type: 
  Country: None (occurrence: None)
  Receive Date: 20060807
  Receipt Date: 20060725
  Transmission Date: 20061208
  Serious: Yes (Hospitalization)
  Sender: FDA-Public Use
  Company Number: JP200607001390

PATIENT
  Age: 58 Year
  Sex: Male

DRUGS (1)
  1. GEMZAR [Suspect]
     Indication: GALLBLADDER CANCER
     Dosage: 1600 MG, OTHER, INTRAVENOUS
     Route: 042
     Dates: start: 20051115, end: 20060614

REACTIONS (1)
  - BLOOD SODIUM DECREASED [None]
